FAERS Safety Report 8607096-1 (Version None)
Quarter: 2012Q3

REPORT INFORMATION
  Report Type: 
  Country: None (occurrence: None)
  Receive Date: 20120821
  Receipt Date: 20120809
  Transmission Date: 20120928
  Serious: Yes (Hospitalization, Other)
  Sender: FDA-Public Use
  Company Number: CA-BIOGENIDEC-2012BI024617

PATIENT
  Age: 72 Year
  Sex: Female

DRUGS (8)
  1. CORTEF [Concomitant]
  2. LISINOPRIL [Concomitant]
  3. TYSABRI [Suspect]
     Indication: CROHN'S DISEASE
     Route: 042
     Dates: start: 20120312
  4. PANTOPRAZOLE [Concomitant]
  5. VALACYCLOVIR HYDROCHLORIDE [Concomitant]
  6. FOLIC ACID [Concomitant]
  7. LOPERAMIDE [Concomitant]
  8. VITAMIN TAB [Concomitant]

REACTIONS (1)
  - SQUAMOUS CELL CARCINOMA [None]
